FAERS Safety Report 24400223 (Version 1)
Quarter: 2024Q4

REPORT INFORMATION
  Report Type: Spontaneous
  Country: GB (occurrence: GB)
  Receive Date: 20241005
  Receipt Date: 20241005
  Transmission Date: 20250114
  Serious: Yes (Other)
  Sender: TEVA
  Company Number: GB-MHRA-TPP28033819C8443337YC1727185130577

PATIENT
  Age: 82 Year
  Sex: Female
  Weight: 82 kg

DRUGS (7)
  1. PREDNISOLONE [Suspect]
     Active Substance: PREDNISOLONE
     Indication: Ill-defined disorder
     Route: 065
     Dates: start: 20240702
  2. ATORVASTATIN [Concomitant]
     Active Substance: ATORVASTATIN
     Indication: Ill-defined disorder
     Dosage: AT NIGHT - INTOLERANT OF HIGHER DOSE,
     Dates: start: 20220208
  3. BENDROFLUMETHIAZIDE [Concomitant]
     Active Substance: BENDROFLUMETHIAZIDE
     Indication: Ill-defined disorder
     Dosage: TO BE TAKEN IN THE MORNING TO TREAT ...,
     Dates: start: 20230901
  4. SODIUM HYALURONATE [Concomitant]
     Active Substance: HYALURONATE SODIUM
     Indication: Ill-defined disorder
     Dosage: INSTILL 1-2 DROPS TO BE TAKEN FOUR TIMES DAILY ...
     Dates: start: 20230210
  5. AMITRIPTYLINE HYDROCHLORIDE [Concomitant]
     Active Substance: AMITRIPTYLINE HYDROCHLORIDE
     Indication: Ill-defined disorder
     Dosage: TO BE TAKEN AT NIGHT ,
     Dates: start: 20221208
  6. CODEINE PHOSPHATE [Concomitant]
     Active Substance: CODEINE PHOSPHATE
     Indication: Ill-defined disorder
     Dosage: PRN 4 HRS
     Dates: start: 20240405
  7. LOSARTAN [Concomitant]
     Active Substance: LOSARTAN
     Indication: Ill-defined disorder
     Dates: start: 20220208

REACTIONS (3)
  - Flushing [Recovered/Resolved]
  - Malaise [Unknown]
  - Palpitations [Recovered/Resolved]
